FAERS Safety Report 21285355 (Version 1)
Quarter: 2022Q3

REPORT INFORMATION
  Report Type: Spontaneous
  Country: US (occurrence: None)
  Receive Date: 20220901
  Receipt Date: 20220901
  Transmission Date: 20221026
  Serious: No
  Sender: FDA-Public Use
  Company Number: None

PATIENT

DRUGS (1)
  1. EVEROLIMUS [Suspect]
     Active Substance: EVEROLIMUS
     Route: 048

REACTIONS (4)
  - Accidental exposure to product packaging [None]
  - Product use complaint [None]
  - Product communication issue [None]
  - Packaging design issue [None]
